FAERS Safety Report 7000481-3 (Version None)
Quarter: 2010Q3

REPORT INFORMATION
  Report Type: 
  Country: None (occurrence: None)
  Receive Date: 20100920
  Receipt Date: 20100908
  Transmission Date: 20110219
  Serious: Yes (Death, Life-Threatening)
  Sender: FDA-Public Use
  Company Number: ZA-NOVOPROD-313420

PATIENT
  Sex: Male
  Weight: 86.6 kg

DRUGS (3)
  1. LANTUS [Suspect]
     Indication: TYPE 2 DIABETES MELLITUS
     Dosage: 105 IU, QD
     Route: 058
     Dates: start: 20090916, end: 20100816
  2. NOVORAPID FLEXPEN [Suspect]
     Indication: TYPE 2 DIABETES MELLITUS
     Dosage: 0 IU, QD
     Route: 058
     Dates: start: 20090916, end: 20100816
  3. ENALAPRIL [Concomitant]
     Indication: HYPERTENSION
     Dosage: 5 MG, BID
     Route: 048
     Dates: start: 20050301

REACTIONS (1)
  - MYOCARDIAL INFARCTION [None]
